FAERS Safety Report 12657974 (Version 2)
Quarter: 2016Q3

REPORT INFORMATION
  Report Type: Spontaneous
  Country: US (occurrence: US)
  Receive Date: 20160817
  Receipt Date: 20160907
  Transmission Date: 20161109
  Serious: Yes (Other)
  Sender: FDA-Public Use
  Company Number: US-TEVA-683642USA

PATIENT
  Age: 88 Year
  Sex: Female
  Weight: 65.83 kg

DRUGS (3)
  1. AMOXICILLIN. [Suspect]
     Active Substance: AMOXICILLIN
     Indication: CYSTITIS
     Dates: end: 20160801
  2. METHOTREXATE. [Suspect]
     Active Substance: METHOTREXATE
  3. RABEPRAZOLE [Suspect]
     Active Substance: RABEPRAZOLE
     Indication: GASTROOESOPHAGEAL REFLUX DISEASE
     Route: 065
     Dates: start: 20160803

REACTIONS (3)
  - Decreased appetite [Unknown]
  - Peripheral swelling [Unknown]
  - Urinary retention [Unknown]

NARRATIVE: CASE EVENT DATE: 20160805
